FAERS Safety Report 4612776-9 (Version None)
Quarter: 2005Q1

REPORT INFORMATION
  Report Type: 
  Country: None (occurrence: None)
  Receive Date: 20050317
  Receipt Date: 20050317
  Transmission Date: 20050727
  Serious: No
  Sender: FDA-Public Use
  Company Number: None

PATIENT
  Sex: Male
  Weight: 88 kg

DRUGS (12)
  1. ALLOPURINOL [Suspect]
     Dosage: 300 MG PO QD ON DAYS 1-14
     Route: 048
  2. CYCLOPHOSPHAMIDE [Suspect]
     Dosage: 1200 MG/M2 IV OVER 15-30 MIN ON DAY 1
     Route: 042
     Dates: start: 20050107, end: 20050211
  3. DAUNORUBICIN HCL [Suspect]
     Dosage: 80 MG/M2/DAY X 3 DAYS IV 60 MG/M2 ON DAYS 1,2,3
     Route: 042
  4. VINCRISTINE 2 MG IVP ON DAYS 1,8,15,22 [Suspect]
     Dosage: 2 MG IVP ON DAYS 1,8,15,22
     Route: 042
  5. DEXAMETHASONE [Suspect]
     Dosage: 5MG/M2 PO BID ON DAYS 1-7 AND 15-21
     Route: 048
  6. ELSPAR [Suspect]
     Dosage: 6000 U/M2 SC/IM ON DAYS 5,8,11,15,18,22
     Route: 058
     Dates: start: 20050107, end: 20050304
  7. G-CSF [Suspect]
     Dosage: 5 MCG/KG/DAY SC STARTING DAY 4X7 DAYS AND CONTINUING UNTIL ANC IS } 5000 MCL PRN
     Route: 058
  8. CASPOFUNGIN [Concomitant]
  9. CEFTAZIDIME [Concomitant]
  10. DAPTOMYCIN [Concomitant]
  11. METRONIDAZOLE [Concomitant]
  12. PIPERACILLIN SODIUM [Concomitant]

REACTIONS (12)
  - ASTHENIA [None]
  - BACTERIAL SEPSIS [None]
  - BLOOD CULTURE POSITIVE [None]
  - CAECITIS [None]
  - CULTURE THROAT POSITIVE [None]
  - DRUG TOXICITY [None]
  - ENTEROCOCCAL INFECTION [None]
  - FEBRILE NEUTROPENIA [None]
  - LIVER FUNCTION TEST ABNORMAL [None]
  - MUCOSAL INFLAMMATION [None]
  - NERVOUS SYSTEM DISORDER [None]
  - RENAL FAILURE ACUTE [None]
